FAERS Safety Report 6395895-9 (Version None)
Quarter: 2009Q4

REPORT INFORMATION
  Report Type: 
  Country: None (occurrence: None)
  Receive Date: 20091009
  Receipt Date: 20090831
  Transmission Date: 20100525
  Serious: No
  Sender: FDA-Public Use
  Company Number: A0801971A

PATIENT
  Age: 45 Year
  Sex: Female

DRUGS (2)
  1. TYKERB [Suspect]
     Indication: DRUG USE FOR UNKNOWN INDICATION
     Route: 048
     Dates: start: 20090730
  2. UNKNOWN [Concomitant]

REACTIONS (4)
  - DIARRHOEA [None]
  - ORAL PAIN [None]
  - STOMATITIS [None]
  - WHITE BLOOD CELL COUNT DECREASED [None]
